FAERS Safety Report 9919358 (Version 2)
Quarter: 2014Q1

REPORT INFORMATION
  Report Type: Spontaneous
  Country: FR (occurrence: FR)
  Receive Date: 20140224
  Receipt Date: 20140224
  Transmission Date: 20141002
  Serious: Yes (Other)
  Sender: FDA-Public Use
  Company Number: FR-TEVA-456725ISR

PATIENT
  Sex: Female
  Weight: 46 kg

DRUGS (6)
  1. ESOMEPRAZOLE TEVA 20MG [Suspect]
     Dosage: 1 DOSAGE FORMS DAILY; TREATED AT LEAST SINCE EARLY 2012, IN THE EVENING
     Route: 048
  2. TICLOPIDINE TEVA 250MG [Suspect]
     Dosage: 1 DOSAGE FORMS DAILY; IN THE EVENING
     Route: 048
     Dates: start: 201308
  3. ASPEGIC [Concomitant]
     Dosage: AT LEAST SINCE 2012
  4. CRESTOR [Concomitant]
     Dosage: AT LEAST SINCE 2012
  5. VERCYTE [Concomitant]
     Indication: THROMBOCYTOSIS
     Dates: start: 2008
  6. TICLID [Concomitant]
     Dates: start: 2008

REACTIONS (5)
  - Hypersensitivity [Not Recovered/Not Resolved]
  - Rash generalised [Not Recovered/Not Resolved]
  - Pruritus [Not Recovered/Not Resolved]
  - Pruritus [Unknown]
  - Arthralgia [Not Recovered/Not Resolved]
